FAERS Safety Report 25009012 (Version 2)
Quarter: 2025Q1

REPORT INFORMATION
  Report Type: Spontaneous
  Country: DE (occurrence: DE)
  Receive Date: 20250225
  Receipt Date: 20250303
  Transmission Date: 20250409
  Serious: Yes (Life-Threatening, Hospitalization)
  Sender: SAMSUNG BIOEPIS
  Company Number: DE-SAMSUNG BIOEPIS-SB-2025-06805

PATIENT
  Age: 62 Year
  Sex: Male

DRUGS (3)
  1. ETANERCEPT [Suspect]
     Active Substance: ETANERCEPT
     Indication: Axial spondyloarthritis
     Dates: start: 20180514, end: 20240403
  2. NALOXONE HYDROCHLORIDE\OXYCODONE HYDROCHLORIDE [Concomitant]
     Active Substance: NALOXONE HYDROCHLORIDE\OXYCODONE HYDROCHLORIDE
     Indication: Product used for unknown indication
     Dosage: ONCE IN MORNING AND ONCE AT NIGHT;
  3. NOVAMINE [Concomitant]
     Active Substance: ALANINE\ARGININE\ASPARTIC ACID\GLUTAMIC ACID\GLYCINE\HISTIDINE\ISOLEUCINE\LEUCINE\LYSINE ACETATE\MET
     Indication: Product used for unknown indication

REACTIONS (3)
  - Fall [Recovered/Resolved]
  - Cervical vertebral fracture [Recovered/Resolved]
  - Cervical spinal stenosis [Recovered/Resolved]

NARRATIVE: CASE EVENT DATE: 20240331
